FAERS Safety Report 15566362 (Version 1)
Quarter: 2018Q4

REPORT INFORMATION
  Report Type: Spontaneous
  Country: US (occurrence: US)
  Receive Date: 20181030
  Receipt Date: 20181030
  Transmission Date: 20190205
  Serious: Yes (Other)
  Sender: FDA-Public Use
  Company Number: US-AKORN PHARMACEUTICALS-2018AKN01627

PATIENT
  Age: 14 Year
  Sex: Male
  Weight: 53.52 kg

DRUGS (3)
  1. MYORISAN [Suspect]
     Active Substance: ISOTRETINOIN
     Dosage: 20 MG, 1X/DAY
     Route: 048
     Dates: start: 201808, end: 201810
  2. TRIAMCINOLONE ACETONIDE. [Concomitant]
     Active Substance: TRIAMCINOLONE ACETONIDE
     Dosage: UNK, 1X/DAY
  3. MYORISAN [Suspect]
     Active Substance: ISOTRETINOIN
     Indication: ACNE CYSTIC
     Dosage: 20 MG, 2X/DAY
     Route: 048
     Dates: start: 201807, end: 201808

REACTIONS (5)
  - Aggression [Unknown]
  - Acne cystic [Unknown]
  - Swelling face [Not Recovered/Not Resolved]
  - Epistaxis [Recovered/Resolved]
  - Skin injury [Recovered/Resolved]

NARRATIVE: CASE EVENT DATE: 2018
